FAERS Safety Report 7489896-7 (Version None)
Quarter: 2011Q2

REPORT INFORMATION
  Report Type: 
  Country: None (occurrence: None)
  Receive Date: 20110512
  Receipt Date: 20110427
  Transmission Date: 20111010
  Serious: Yes (Other)
  Sender: FDA-Public Use
  Company Number: 1000020779

PATIENT
  Age: 71 Year
  Sex: Male
  Weight: 85 kg

DRUGS (11)
  1. METFORMIN (METFORMIN) (850 MILLIGRAM) (METFORMIN) [Concomitant]
  2. BEROTEC (FENOTEROL HYDROBROMIDE) (FENOTEROL HYDROBROMIDE) [Concomitant]
  3. SPIRIVA (TIOTROPIUM BROMIDE) (TIOTROPIUM BROMIDE) [Concomitant]
  4. ALLOPURINOL (ALLOPURINOL) (300 MILLIGRAM) (ALLOPURINOL) [Concomitant]
  5. SYMBICORT (BUDESONIDE, FORMOTEROL FUMARATE) (BUDESONIDE, FORMOTEROL FU [Concomitant]
  6. RAMIPRIL [Concomitant]
  7. ROFLUMILAST (ROFLUIMILAST) [Suspect]
     Dosage: 500 MCG (500 MCG, 1 IN 1 D), ORAL
     Route: 048
     Dates: end: 20110417
  8. BERODUAL (FENOTEROL, IPRATROPIUM) (FENOTEROL, IPRATROPIUM) [Concomitant]
  9. VERAPAMIL (VERAPAMIL) (120 MILLIGRAM) (VERAPAMIL) [Concomitant]
  10. ROFLUMILAST (ROFLUIMILAST) [Suspect]
     Dosage: 500 MCG (500 MCG, 1 IN 1 D), ORAL
     Route: 048
     Dates: start: 20110320
  11. PRAVASTATIN (PRAVASTATIN) (20 MILLIGRAM) (PRAVASTATIN) [Concomitant]

REACTIONS (2)
  - HYPERSENSITIVITY [None]
  - BACK PAIN [None]
